FAERS Safety Report 20430210 (Version 1)
Quarter: 2022Q1

REPORT INFORMATION
  Report Type: Spontaneous
  Country: US (occurrence: None)
  Receive Date: 20220203
  Receipt Date: 20220203
  Transmission Date: 20220423
  Serious: Yes (unspecified)
  Sender: FDA-Public Use
  Company Number: None

PATIENT
  Age: 67 Year
  Sex: Female
  Weight: 54 kg

DRUGS (2)
  1. PRIVIGEN [Suspect]
     Active Substance: HUMAN IMMUNOGLOBULIN G
     Indication: Hypogammaglobulinaemia
     Dosage: OTHER FREQUENCY : EVERY 4 WEEKS;?
     Route: 042
     Dates: start: 20220203, end: 20220203
  2. PRIVIGEN [Suspect]
     Active Substance: HUMAN IMMUNOGLOBULIN G
     Indication: Immunodeficiency common variable

REACTIONS (9)
  - Infusion related reaction [None]
  - Headache [None]
  - Flushing [None]
  - Hypertension [None]
  - Respiratory rate increased [None]
  - Chest discomfort [None]
  - Dyspnoea [None]
  - Swollen tongue [None]
  - Heart rate decreased [None]

NARRATIVE: CASE EVENT DATE: 20220203
